FAERS Safety Report 5471062-8 (Version None)
Quarter: 2007Q3

REPORT INFORMATION
  Report Type: 
  Country: None (occurrence: None)
  Receive Date: 20070928
  Receipt Date: 20070525
  Transmission Date: 20080115
  Serious: No
  Sender: FDA-Public Use
  Company Number: A0651604A

PATIENT
  Age: 16 Year
  Sex: Male
  Weight: 71 kg

DRUGS (6)
  1. LAMOTRIGINE [Suspect]
     Indication: EPILEPSY
     Dosage: 25MG UNKNOWN
     Route: 048
     Dates: start: 20020101
  2. TRILEPTAL [Concomitant]
     Dosage: 600MG THREE TIMES PER DAY
     Route: 048
  3. NEURONTIN [Concomitant]
     Dosage: 2100MG PER DAY
  4. TRANXENE [Concomitant]
     Dosage: 26.25MG PER DAY
  5. RITALIN [Concomitant]
     Dosage: 15MG PER DAY
  6. TENEX [Concomitant]
     Dosage: .5MG TWICE PER DAY

REACTIONS (3)
  - LOCAL SWELLING [None]
  - RASH [None]
  - SKIN EXFOLIATION [None]
